FAERS Safety Report 9535479 (Version 1)
Quarter: 2013Q3

REPORT INFORMATION
  Report Type: Report from Study
  Country: US (occurrence: US)
  Receive Date: 20130918
  Receipt Date: 20130918
  Transmission Date: 20140515
  Serious: Yes (Other)
  Sender: FDA-Public Use
  Company Number: US-BAXTER-2013BAX036908

PATIENT
  Sex: 0

DRUGS (7)
  1. IFOSFAMIDE FOR INJECTION [Suspect]
     Indication: SARCOMA
     Dosage: OVER 1 HR
     Route: 042
  2. CYCLOPHOSPHAMIDE FOR INJECTION, USP [Suspect]
     Indication: SARCOMA
     Dosage: OVER 1 HR DAYS 1 AND 2
     Route: 042
  3. MESNA FOR INJECTION [Suspect]
     Indication: SARCOMA
     Dosage: IN FOUR DOSES BY CONTINUOUS INFUSION OR BOLUS AT REGULAR INTERVALS
     Route: 040
  4. VINCRISTINE [Suspect]
     Indication: SARCOMA
     Dosage: DAYS 1, 8 AND 15
     Route: 042
  5. DOXORUBICIN [Suspect]
     Indication: SARCOMA
     Dosage: OVER 48 HRS ON DAY 1
     Route: 042
  6. ETOPOSIDE [Suspect]
     Indication: SARCOMA
     Dosage: OVER 1 HR
     Route: 042
  7. PEGFILGRASTIM [Suspect]
     Indication: PROPHYLAXIS
     Route: 058

REACTIONS (1)
  - Febrile neutropenia [Unknown]
